FAERS Safety Report 8401500-X (Version None)
Quarter: 2012Q2

REPORT INFORMATION
  Report Type: 
  Country: None (occurrence: None)
  Receive Date: 20120529
  Receipt Date: 20120515
  Transmission Date: 20120825
  Serious: Yes (Hospitalization)
  Sender: FDA-Public Use
  Company Number: DKLU1080729

PATIENT
  Age: 10 Year
  Sex: Female

DRUGS (4)
  1. TOPIRAMATE [Suspect]
     Indication: PARTIAL SEIZURES
     Dosage: 200 MG
  2. LEVETIRACETAM [Suspect]
     Indication: PARTIAL SEIZURES
     Dosage: 1750 MG
  3. CARBAMAZEPINE [Suspect]
     Indication: PARTIAL SEIZURES
     Dosage: 600 MG
  4. ONFI [Suspect]
     Indication: PARTIAL SEIZURES
     Dosage: 25 MG

REACTIONS (1)
  - STATUS EPILEPTICUS [None]
